FAERS Safety Report 7542178-7 (Version None)
Quarter: 2011Q2

REPORT INFORMATION
  Report Type: 
  Country: None (occurrence: None)
  Receive Date: 20110613
  Receipt Date: 20110531
  Transmission Date: 20111010
  Serious: No
  Sender: FDA-Public Use
  Company Number: US-B.I. PHARMACEUTICALS,INC./RIDGEFIELD-2011-BP-14358BP

PATIENT
  Age: 78 Year
  Sex: Female

DRUGS (10)
  1. COREG [Concomitant]
     Indication: HYPERTENSION
     Route: 048
  2. MAGNESIUM SULFATE [Concomitant]
     Indication: PROPHYLAXIS
     Route: 048
  3. COD LIVER OIL [Concomitant]
     Indication: PROPHYLAXIS
     Route: 048
  4. DITROPAN XL [Concomitant]
     Indication: POLLAKIURIA
     Route: 048
  5. SIMVASTATIN [Concomitant]
     Indication: BLOOD CHOLESTEROL INCREASED
     Route: 048
  6. BUSPAR [Concomitant]
     Indication: ANXIETY
     Route: 048
  7. STOOL SOFTENER [Concomitant]
     Indication: CONSTIPATION
     Route: 048
  8. CALCIUM CARBONATE [Concomitant]
     Indication: PROPHYLAXIS
     Route: 048
  9. PRADAXA [Suspect]
     Indication: ATRIAL FIBRILLATION
     Dosage: 300 MG
     Route: 048
     Dates: start: 20110513, end: 20110523
  10. LISINOPRIL [Concomitant]
     Indication: HYPERTENSION
     Route: 048

REACTIONS (5)
  - DIZZINESS [None]
  - EPISTAXIS [None]
  - ABDOMINAL PAIN UPPER [None]
  - APHAGIA [None]
  - MELAENA [None]
